FAERS Safety Report 6467707-6 (Version None)
Quarter: 2009Q4

REPORT INFORMATION
  Report Type: 
  Country: None (occurrence: None)
  Receive Date: 20091202
  Receipt Date: 20081116
  Transmission Date: 20100525
  Serious: No
  Sender: FDA-Public Use
  Company Number: US-AMGEN-KDL319270

PATIENT
  Sex: Female

DRUGS (3)
  1. ENBREL [Suspect]
     Indication: PSORIASIS
     Route: 058
     Dates: start: 20080427
  2. CORTICOSTEROIDS [Concomitant]
  3. ZITHROMAX [Concomitant]

REACTIONS (4)
  - ADVERSE DRUG REACTION [None]
  - COUGH [None]
  - DYSPHONIA [None]
  - ERYTHEMA [None]
